FAERS Safety Report 23402643 (Version 1)
Quarter: 2024Q1

REPORT INFORMATION
  Report Type: Spontaneous
  Country: US (occurrence: US)
  Receive Date: 20240115
  Receipt Date: 20240115
  Transmission Date: 20240410
  Serious: Yes (Hospitalization, Other)
  Sender: FDA-Public Use
  Company Number: US-ELI_LILLY_AND_COMPANY-US202401004105

PATIENT
  Age: 67 Year
  Sex: Male

DRUGS (1)
  1. TRULICITY [Suspect]
     Active Substance: DULAGLUTIDE
     Indication: Type 2 diabetes mellitus
     Dosage: K
     Route: 065

REACTIONS (9)
  - Heat stroke [Recovered/Resolved]
  - Shoulder fracture [Recovered/Resolved]
  - Fall [Unknown]
  - Renal disorder [Recovering/Resolving]
  - Glycosylated haemoglobin increased [Unknown]
  - Arthralgia [Unknown]
  - Stress [Unknown]
  - Blood glucose increased [Unknown]
  - Acute kidney injury [Recovered/Resolved]

NARRATIVE: CASE EVENT DATE: 20200101
